FAERS Safety Report 11451177 (Version 1)
Quarter: 2015Q3

REPORT INFORMATION
  Report Type: Spontaneous
  Country: US (occurrence: US)
  Receive Date: 20150903
  Receipt Date: 20150903
  Transmission Date: 20151125
  Serious: No
  Sender: FDA-Public Use
  Company Number: US-ROCHE-1026253

PATIENT
  Sex: Male

DRUGS (3)
  1. RIBASPHERE RIBAPAK [Suspect]
     Active Substance: RIBAVIRIN
     Indication: CHRONIC HEPATITIS C
     Route: 048
     Dates: start: 20111125
  2. PEGASYS [Suspect]
     Active Substance: PEGINTERFERON ALFA-2A
     Indication: CHRONIC HEPATITIS C
     Route: 058
     Dates: start: 20111125
  3. TELAPREVIR [Suspect]
     Active Substance: TELAPREVIR
     Indication: CHRONIC HEPATITIS C
     Route: 065
     Dates: start: 20111125

REACTIONS (10)
  - Dry skin [Recovered/Resolved]
  - Neutrophil count decreased [Unknown]
  - Paraesthesia [Unknown]
  - Thyroid function test abnormal [Unknown]
  - Influenza like illness [Unknown]
  - Pruritus [Unknown]
  - White blood cell count decreased [Unknown]
  - Stomatitis [Unknown]
  - Dry throat [Unknown]
  - Haemoglobin decreased [Unknown]
